FAERS Safety Report 9461393 (Version 1)
Quarter: 2013Q3

REPORT INFORMATION
  Report Type: Spontaneous
  Country: US (occurrence: None)
  Receive Date: 20130814
  Receipt Date: 20130814
  Transmission Date: 20140515
  Serious: Yes (Other)
  Sender: FDA-Public Use
  Company Number: None

PATIENT
  Age: 80 Year
  Sex: Male
  Weight: 104.33 kg

DRUGS (1)
  1. ESCAITALOPRAM 5 MG CAMBER [Suspect]
     Indication: DEPRESSION
     Dosage: 5 MG 1 TABLET A BEDTIME BY MOUTH
     Route: 048
     Dates: start: 20130720, end: 20130723

REACTIONS (2)
  - Tremor [None]
  - Diarrhoea [None]
